FAERS Safety Report 8163145-9 (Version None)
Quarter: 2012Q1

REPORT INFORMATION
  Report Type: 
  Country: None (occurrence: None)
  Receive Date: 20120224
  Receipt Date: 20110615
  Transmission Date: 20120608
  Serious: No
  Sender: FDA-Public Use
  Company Number: US-PFIZER INC-K201100724

PATIENT
  Age: 84 Year
  Sex: Male
  Weight: 83.9 kg

DRUGS (19)
  1. NORVASC [Concomitant]
     Dosage: 5 MG, UNK
     Route: 048
  2. TERAZOSIN HYDROCHLORIDE [Concomitant]
     Dosage: UNK
     Route: 048
  3. OMEPRAZOLE [Concomitant]
     Dosage: UNK
     Route: 048
  4. ASPIRIN [Concomitant]
     Dosage: 81 MG, UNK
  5. MAGNESIUM W/ZINC [Concomitant]
     Dosage: UNK
     Route: 048
  6. ASCORBIC ACID [Concomitant]
     Dosage: UNK
  7. VITAMIN B3 [Concomitant]
     Dosage: UNK
  8. CALCIUM + VITAMIN D [Concomitant]
     Dosage: UNK
     Route: 048
  9. COUMADIN [Concomitant]
     Dosage: 7.5 MG, ALTERNATE DAY
     Route: 048
  10. FLECTOR [Suspect]
     Indication: BACK PAIN
     Dosage: 1 PATCH, BID
     Route: 061
     Dates: start: 20110614
  11. MULTI-VITAMINS [Concomitant]
     Dosage: UNK
     Route: 048
  12. VITAMIN E [Concomitant]
     Dosage: UNK
     Route: 048
  13. FINASTERIDE [Concomitant]
     Dosage: UNK
     Route: 048
  14. LISINOPRIL [Concomitant]
     Dosage: 20 MG, UNK
     Route: 048
  15. DIGOXIN [Concomitant]
     Dosage: 0.125 MG, UNK
  16. IRON [Concomitant]
     Dosage: UNK
     Route: 048
  17. LOVAZA [Concomitant]
     Dosage: UNK
     Route: 048
  18. VITAMIN B-12 [Concomitant]
     Dosage: UNK
     Route: 048
  19. SPIRIVA [Concomitant]
     Dosage: UNK

REACTIONS (1)
  - DRUG INEFFECTIVE [None]
